FAERS Safety Report 8868633 (Version 1)
Quarter: 2012Q4

REPORT INFORMATION
  Report Type: 
  Country: US (occurrence: US)
  Receive Date: 20121024
  Receipt Date: 20121024
  Transmission Date: 20130627
  Serious: Yes (Hospitalization)
  Sender: FDA-Public Use
  Company Number: US-GLAXOSMITHKLINE-A0997699A

PATIENT
  Age: 24 Year
  Sex: Female

DRUGS (7)
  1. BENLYSTA [Suspect]
     Indication: SYSTEMIC LUPUS ERYTHEMATOSUS
     Dosage: 120MG Unknown
     Route: 042
     Dates: start: 20120925
  2. XANAX [Concomitant]
  3. CARDIAZOL [Concomitant]
  4. LEVOTHYROXINE [Concomitant]
  5. COUMADIN [Concomitant]
  6. CORTICOSTEROID [Concomitant]
  7. PLAQUENIL [Concomitant]

REACTIONS (9)
  - Abnormal behaviour [Not Recovered/Not Resolved]
  - Soliloquy [Not Recovered/Not Resolved]
  - Anxiety [Not Recovered/Not Resolved]
  - Depression [Not Recovered/Not Resolved]
  - Confusional state [Not Recovered/Not Resolved]
  - Suspiciousness [Not Recovered/Not Resolved]
  - Anger [Not Recovered/Not Resolved]
  - Fear [Not Recovered/Not Resolved]
  - Tremor [Not Recovered/Not Resolved]
